FAERS Safety Report 4717986-8 (Version None)
Quarter: 2005Q3

REPORT INFORMATION
  Report Type: 
  Country: None (occurrence: None)
  Receive Date: 20050719
  Receipt Date: 20050308
  Transmission Date: 20060218
  Serious: Yes (Other)
  Sender: FDA-Public Use
  Company Number: 2005020823

PATIENT
  Age: 61 Year
  Sex: Female

DRUGS (8)
  1. CELEBREX [Suspect]
     Indication: ILL-DEFINED DISORDER
     Dosage: 200 MG (200 MG, 1 IN 1 D)
     Dates: end: 20040101
  2. CIPROFLOXACIN [Suspect]
     Indication: URINARY TRACT INFECTION
     Dosage: 500 MG (250 MG, 2 IN 1 D), ORAL
     Route: 048
  3. LEVOTHYROXINE SODIUM [Concomitant]
  4. CONJUGATED ESTROGENS [Concomitant]
  5. LANSOPRAZOLE [Concomitant]
  6. MECLOZINE (MECLOZINE) [Concomitant]
  7. METHOTREXATE SODUM (METHOTREXATE SODIUM) [Concomitant]
  8. PAROXETINE HCL [Concomitant]

REACTIONS (9)
  - ARTHRALGIA [None]
  - DYSARTHRIA [None]
  - INFLUENZA [None]
  - JOINT STIFFNESS [None]
  - LABYRINTHITIS [None]
  - ORTHOSTATIC HYPOTENSION [None]
  - PNEUMONIA [None]
  - RENAL FAILURE ACUTE [None]
  - URINARY TRACT INFECTION [None]
